FAERS Safety Report 21471274 (Version 1)
Quarter: 2022Q4

REPORT INFORMATION
  Report Type: Spontaneous
  Country: US (occurrence: None)
  Receive Date: 20221017
  Receipt Date: 20221017
  Transmission Date: 20230113
  Serious: Yes (unspecified)
  Sender: FDA-Public Use
  Company Number: None

PATIENT
  Age: 42 Year
  Sex: Female
  Weight: 127.6 kg

DRUGS (1)
  1. RITUXAN [Suspect]
     Active Substance: RITUXIMAB
     Indication: Autoimmune haemolytic anaemia
     Dosage: FREQUENCY : WEEKLY;?
     Route: 041
     Dates: start: 20221004

REACTIONS (3)
  - Cough [None]
  - Oropharyngeal discomfort [None]
  - Infusion related reaction [None]

NARRATIVE: CASE EVENT DATE: 20221004
